FAERS Safety Report 18057585 (Version 1)
Quarter: 2020Q3

REPORT INFORMATION
  Report Type: Report from Study
  Country: None (occurrence: US)
  Receive Date: 20200722
  Receipt Date: 20200722
  Transmission Date: 20201103
  Serious: Yes (Hospitalization)
  Sender: FDA-Public Use
  Company Number: US-ABBVIE-20K-163-3486438-00

PATIENT
  Sex: Female

DRUGS (1)
  1. HUMIRA [Suspect]
     Active Substance: ADALIMUMAB
     Indication: COLITIS ULCERATIVE
     Route: 058

REACTIONS (7)
  - Crohn^s disease [Unknown]
  - Procedural complication [Unknown]
  - Hysterectomy [Unknown]
  - Colitis ulcerative [Unknown]
  - Ostomy bag placement [Unknown]
  - Drug ineffective [Unknown]
  - Surgery [Unknown]
